FAERS Safety Report 20805871 (Version 1)
Quarter: 2022Q2

REPORT INFORMATION
  Report Type: Spontaneous
  Country: US (occurrence: US)
  Receive Date: 20220510
  Receipt Date: 20220510
  Transmission Date: 20220721
  Serious: No
  Sender: FDA-Public Use
  Company Number: US-ALLERGAN-2204192US

PATIENT
  Age: 48 Year
  Sex: Female
  Weight: 59.864 kg

DRUGS (2)
  1. VUITY [Suspect]
     Active Substance: PILOCARPINE HYDROCHLORIDE
     Indication: Presbyopia
     Dosage: 2 GTT, QD
     Route: 047
     Dates: start: 20220120, end: 20220203
  2. RELPAX [Concomitant]
     Active Substance: ELETRIPTAN HYDROBROMIDE
     Indication: Migraine
     Dosage: 40 MG, PRN
     Route: 048

REACTIONS (2)
  - Delayed dark adaptation [Recovered/Resolved]
  - Drug ineffective [Unknown]

NARRATIVE: CASE EVENT DATE: 20220120
